FAERS Safety Report 19527505 (Version 1)
Quarter: 2021Q3

REPORT INFORMATION
  Report Type: Spontaneous
  Country: FR (occurrence: FR)
  Receive Date: 20210713
  Receipt Date: 20210713
  Transmission Date: 20211014
  Serious: Yes (Other)
  Sender: FDA-Public Use
  Company Number: FR-ROCHE-2857770

PATIENT
  Sex: Male

DRUGS (3)
  1. ELIQUIS [Concomitant]
     Active Substance: APIXABAN
  2. INSULIN [Concomitant]
     Active Substance: INSULIN NOS
  3. TECENTRIQ [Suspect]
     Active Substance: ATEZOLIZUMAB
     Indication: SMALL CELL LUNG CANCER
     Dosage: 1200MG/20ML FLA 1?HE RECEIVED HIS 5TH CYCLE ON 04/MAY
     Route: 065

REACTIONS (1)
  - Encephalitis [Unknown]
